FAERS Safety Report 5621116-8 (Version None)
Quarter: 2008Q1

REPORT INFORMATION
  Report Type: 
  Country: None (occurrence: None)
  Receive Date: 20080114
  Receipt Date: 20070115
  Transmission Date: 20080703
  Serious: Yes (Other)
  Sender: FDA-Public Use
  Company Number: A03200700369

PATIENT
  Age: 79 Year
  Sex: Female

DRUGS (1)
  1. PLAVIX [Suspect]
     Indication: TRANSIENT ISCHAEMIC ATTACK
     Dosage: ORAL
     Route: 048
     Dates: start: 20050101, end: 20070101

REACTIONS (2)
  - GASTROINTESTINAL HAEMORRHAGE [None]
  - TRANSIENT ISCHAEMIC ATTACK [None]
